FAERS Safety Report 22010594 (Version 1)
Quarter: 2023Q1

REPORT INFORMATION
  Report Type: Spontaneous
  Country: US (occurrence: US)
  Receive Date: 20230220
  Receipt Date: 20230220
  Transmission Date: 20230418
  Serious: No
  Sender: FDA-Public Use
  Company Number: US-PERRIGO-22US012948

PATIENT

DRUGS (1)
  1. NAPROXEN SODIUM [Suspect]
     Active Substance: NAPROXEN SODIUM
     Indication: Product used for unknown indication
     Dosage: 220 TO 440 MG, UNK
     Route: 048
     Dates: start: 202209

REACTIONS (2)
  - Drug effect less than expected [Unknown]
  - Expired product administered [Unknown]

NARRATIVE: CASE EVENT DATE: 20220901
